FAERS Safety Report 5168855-3 (Version None)
Quarter: 2006Q4

REPORT INFORMATION
  Report Type: 
  Country: None (occurrence: None)
  Receive Date: 20061205
  Receipt Date: 20061205
  Transmission Date: 20070319
  Serious: Yes (Hospitalization)
  Sender: FDA-Public Use
  Company Number: None

PATIENT
  Age: 60 Year
  Sex: Male
  Weight: 116.1 kg

DRUGS (2)
  1. ANIODARONE [Suspect]
     Dosage: 200 MG BID PO
     Route: 048
  2. SPIRONOLACTONE [Suspect]
     Dosage: 25 MG QD PO
     Route: 048

REACTIONS (10)
  - ADVERSE DRUG REACTION [None]
  - CORONARY ARTERY DISEASE [None]
  - EJECTION FRACTION DECREASED [None]
  - HYPERSENSITIVITY [None]
  - HYPOTENSION [None]
  - INTERNATIONAL NORMALISED RATIO INCREASED [None]
  - LEUKOCYTOSIS [None]
  - OVERDOSE [None]
  - RENAL FAILURE ACUTE [None]
  - TROPONIN INCREASED [None]
